FAERS Safety Report 25892507 (Version 1)
Quarter: 2025Q4

REPORT INFORMATION
  Report Type: Spontaneous
  Country: US (occurrence: None)
  Receive Date: 20251007
  Receipt Date: 20251007
  Transmission Date: 20260117
  Serious: Yes (unspecified)
  Sender: FDA-CTU
  Company Number: None

PATIENT
  Age: 50 Year
  Sex: Female
  Weight: 72 kg

DRUGS (6)
  1. GLYCINE\SEMAGLUTIDE [Suspect]
     Active Substance: GLYCINE\SEMAGLUTIDE
     Indication: Obesity
     Dosage: OTHER QUANTITY : 1 INJECTION(S);?OTHER FREQUENCY : WEEKLY;?OTHER ROUTE : SUBCUTANEOUSLY;?
     Route: 058
     Dates: start: 20250920, end: 20251007
  2. TIRZEPATIDE [Suspect]
     Active Substance: TIRZEPATIDE
  3. ESTRADIOL [Suspect]
     Active Substance: ESTRADIOL
  4. PROGESTERONE [Suspect]
     Active Substance: PROGESTERONE
  5. ALBUTEROL [Concomitant]
     Active Substance: ALBUTEROL
  6. SINGULAIR [Concomitant]
     Active Substance: MONTELUKAST SODIUM

REACTIONS (3)
  - Depression [None]
  - Hot flush [None]
  - Drug ineffective [None]

NARRATIVE: CASE EVENT DATE: 20251006
